FAERS Safety Report 4642137-8 (Version None)
Quarter: 2005Q2

REPORT INFORMATION
  Report Type: 
  Country: None (occurrence: None)
  Receive Date: 20050422
  Receipt Date: 20050415
  Transmission Date: 20051028
  Serious: Yes (Hospitalization, Other)
  Sender: FDA-Public Use
  Company Number: PHBS2005CH05451

PATIENT
  Age: 44 Year
  Sex: Male

DRUGS (12)
  1. TEMGESIC [Suspect]
     Dosage: 0.6 MG/D
     Route: 048
     Dates: start: 20050127, end: 20050228
  2. PREDNISONE TAB [Suspect]
     Dosage: 10 MG/D
     Route: 048
  3. TEMESTA [Suspect]
     Dosage: 2 MG/D
     Route: 048
  4. SANDIMMUNE [Suspect]
     Indication: RENAL TRANSPLANT
     Dosage: 175 MG/D
     Route: 048
  5. CELLCEPT [Concomitant]
     Dosage: 1000 MG/D
     Route: 048
  6. RECORMON [Concomitant]
     Dosage: 10000 IU, QW3
     Route: 048
  7. FOLIC ACID [Concomitant]
     Dosage: 5 MG/D
     Route: 048
  8. FRAXIPARINE [Concomitant]
     Dosage: 0.3 ML/D
  9. DAFALGAN [Concomitant]
     Dosage: 4000 G/D
     Route: 048
     Dates: start: 20050127
  10. VANCOMYCIN [Concomitant]
     Dosage: 500 MG/D
     Route: 048
     Dates: start: 20050127
  11. BECOZYM [Concomitant]
     Dosage: 1 TAB/D
     Route: 048
     Dates: start: 20050127
  12. BENERVA [Concomitant]
     Dosage: 300 MG/D
     Route: 048
     Dates: start: 20050127

REACTIONS (11)
  - ARTHRALGIA [None]
  - ARTHRITIS BACTERIAL [None]
  - ATRIAL FIBRILLATION [None]
  - BLOOD CREATININE INCREASED [None]
  - BRONCHOPNEUMONIA [None]
  - CARDIAC FAILURE [None]
  - CHOLESTASIS [None]
  - HALLUCINATION [None]
  - HALLUCINATIONS, MIXED [None]
  - RENAL FAILURE [None]
  - SLEEP DISORDER [None]
